FAERS Safety Report 8235939-2 (Version None)
Quarter: 2012Q1

REPORT INFORMATION
  Report Type: 
  Country: None (occurrence: None)
  Receive Date: 20120326
  Receipt Date: 20120315
  Transmission Date: 20120608
  Serious: Yes (Hospitalization, Disabling)
  Sender: FDA-Public Use
  Company Number: FI-MERCK-1203FIN00008

PATIENT
  Age: 77 Year
  Sex: Female

DRUGS (6)
  1. VALSARTAN [Concomitant]
     Route: 065
     Dates: start: 20060116
  2. RITUXIMAB [Concomitant]
     Indication: RHEUMATOID ARTHRITIS
     Route: 041
     Dates: start: 20110209
  3. FOSAMAX [Suspect]
     Indication: RHEUMATOID ARTHRITIS
     Route: 048
     Dates: start: 20010101, end: 20110929
  4. AMLODIPINE BESYLATE [Concomitant]
     Route: 048
  5. CALCIUM CARBONATE AND CHOLECALCIFEROL [Concomitant]
     Route: 065
     Dates: start: 20101231
  6. PREDNISOLONE [Concomitant]
     Indication: RHEUMATOID ARTHRITIS
     Route: 048
     Dates: start: 20020101

REACTIONS (2)
  - OSTEONECROSIS OF JAW [None]
  - OSTEOMYELITIS [None]
